FAERS Safety Report 5045480-6 (Version None)
Quarter: 2006Q2

REPORT INFORMATION
  Report Type: 
  Country: None (occurrence: None)
  Receive Date: 20060601
  Receipt Date: 20060316
  Transmission Date: 20061013
  Serious: No
  Sender: FDA-Public Use
  Company Number: 2006-BP-02968BP

PATIENT
  Age: 86 Year
  Sex: Female

DRUGS (8)
  1. SPIRIVA [Suspect]
     Indication: ASTHMA
     Dosage: 18 MCG (18 MCG, 1 IN 1 D), IH
     Route: 055
     Dates: start: 20060310
  2. ACIPHEX [Concomitant]
  3. ANTIVERT [Concomitant]
  4. MULTIVITAMIN [Concomitant]
  5. VITAMIN D [Concomitant]
  6. ADVAIR (SERETIDE /01420901/) [Concomitant]
  7. SYNTHROID [Concomitant]
  8. PLAVIX [Concomitant]

REACTIONS (2)
  - HEADACHE [None]
  - MALAISE [None]
